FAERS Safety Report 16681284 (Version 4)
Quarter: 2020Q2

REPORT INFORMATION
  Report Type: Report from Study
  Country: US (occurrence: US)
  Receive Date: 20190808
  Receipt Date: 20200618
  Transmission Date: 20200713
  Serious: No
  Sender: FDA-Public Use
  Company Number: PHEH2019US032436

PATIENT
  Age: 80 Year
  Sex: Male

DRUGS (5)
  1. YOUPLUS VITAMIN C [Concomitant]
     Indication: PRODUCT USED FOR UNKNOWN INDICATION
     Route: 065
  2. VITAMIN D [Concomitant]
     Active Substance: VITAMIN D NOS
     Indication: PRODUCT USED FOR UNKNOWN INDICATION
     Route: 065
  3. ENTRESTO [Suspect]
     Active Substance: SACUBITRIL\VALSARTAN
     Indication: CARDIAC FAILURE
     Dosage: 1 DF (24.26 MG), BID
     Route: 048
     Dates: start: 201904
  4. ALLOPURINOL. [Suspect]
     Active Substance: ALLOPURINOL
     Indication: PRODUCT USED FOR UNKNOWN INDICATION
     Route: 065
  5. PANTOPRAZOLE [Concomitant]
     Active Substance: PANTOPRAZOLE
     Indication: PRODUCT USED FOR UNKNOWN INDICATION
     Route: 065

REACTIONS (11)
  - Heart rate increased [Unknown]
  - Musculoskeletal discomfort [Unknown]
  - Medication error [Unknown]
  - Hypotension [Not Recovered/Not Resolved]
  - Pulse abnormal [Unknown]
  - Respiratory rate increased [Unknown]
  - Blood pressure decreased [Not Recovered/Not Resolved]
  - Blood glucose abnormal [Unknown]
  - Dyskinesia [Unknown]
  - Drug ineffective [Not Recovered/Not Resolved]
  - Cough [Unknown]

NARRATIVE: CASE EVENT DATE: 201904
